FAERS Safety Report 15821728 (Version 1)
Quarter: 2019Q1

REPORT INFORMATION
  Report Type: Spontaneous
  Country: US (occurrence: US)
  Receive Date: 20190113
  Receipt Date: 20190113
  Transmission Date: 20190417
  Serious: Yes (Life-Threatening)
  Sender: FDA-Public Use
  Company Number: None

PATIENT
  Age: 37 Year
  Sex: Female
  Weight: 129.6 kg

DRUGS (3)
  1. FLUCONAZOLE TABLET [Suspect]
     Active Substance: FLUCONAZOLE
     Indication: PRODUCT USED FOR UNKNOWN INDICATION
     Dosage: ?          QUANTITY:1 TABLET(S);?
     Route: 048
     Dates: start: 20181001, end: 20190109
  2. HYDROCORTISONE. [Concomitant]
     Active Substance: HYDROCORTISONE
  3. PREDNISONE. [Concomitant]
     Active Substance: PREDNISONE

REACTIONS (7)
  - Anaphylactic reaction [None]
  - Oral pruritus [None]
  - Skin hyperpigmentation [None]
  - Wheezing [None]
  - Erythema [None]
  - Pharyngeal oedema [None]
  - Pruritus generalised [None]

NARRATIVE: CASE EVENT DATE: 20190109
